FAERS Safety Report 19736699 (Version 2)
Quarter: 2021Q3

REPORT INFORMATION
  Report Type: Report from Study
  Country: US (occurrence: US)
  Receive Date: 20210823
  Receipt Date: 20210913
  Transmission Date: 20211014
  Serious: Yes (Hospitalization)
  Sender: FDA-Public Use
  Company Number: US-TEVA-2021-US-1943586

PATIENT
  Age: 3 Year
  Sex: Male
  Weight: 21.4 kg

DRUGS (25)
  1. METHOTREXATE. [Suspect]
     Active Substance: METHOTREXATE
     Indication: ACUTE LYMPHOCYTIC LEUKAEMIA
     Dosage: 20 MG/M2/DOSE/WEEKLY DAYS 8,15, 22, 29, 36, 43, 50, 57, 64, 71, 78
     Route: 048
     Dates: start: 20200114, end: 20200205
  2. MERCAPTOPURINE. [Suspect]
     Active Substance: MERCAPTOPURINE
     Indication: ACUTE LYMPHOCYTIC LEUKAEMIA
     Dosage: 60 MG DAYS 1?84
     Route: 048
     Dates: start: 20200108, end: 20200203
  3. INCB018424 [Suspect]
     Active Substance: RUXOLITINIB
     Dosage: 70 MILLIGRAM DAILY;
     Route: 048
     Dates: start: 20200220, end: 20200225
  4. METHOTREXATE. [Suspect]
     Active Substance: METHOTREXATE
     Dosage: 20 MG/M2/DOSE/WEEKLY DAYS 8,15, 22, 29, 36, 43, 50, 57, 64, 71, 78
     Route: 048
     Dates: start: 20200220
  5. VINCRISTINE [Suspect]
     Active Substance: VINCRISTINE
     Indication: ACUTE LYMPHOCYTIC LEUKAEMIA
     Dosage: 1.19 MG ONE TIME ON DAYS 1, 29, AND 57
     Route: 042
     Dates: start: 20200108, end: 20200205
  6. INCB018424 [Suspect]
     Active Substance: RUXOLITINIB
     Dosage: 70 MILLIGRAM DAILY;
     Route: 048
     Dates: start: 20190614, end: 20190628
  7. INCB018424 [Suspect]
     Active Substance: RUXOLITINIB
     Dosage: 70 MILLIGRAM DAILY;
     Route: 048
     Dates: start: 20200407, end: 20200420
  8. INCB018424 [Suspect]
     Active Substance: RUXOLITINIB
     Dosage: 80 MILLIGRAM DAILY;
     Route: 048
     Dates: end: 20200205
  9. ATIVAN [Suspect]
     Active Substance: LORAZEPAM
     Route: 065
  10. METHOTREXATE. [Suspect]
     Active Substance: METHOTREXATE
     Dosage: 15 MG ONE TIME ON DAYS 1 AND 29 OF CYCLES 1 AND 2
     Route: 037
     Dates: start: 20200211
  11. PREDNISONE. [Suspect]
     Active Substance: PREDNISONE
     Dosage: 40 MG/M2 DAILY; 1?5, 29?33, 57?61
     Route: 048
     Dates: start: 20200220
  12. VINCRISTINE [Suspect]
     Active Substance: VINCRISTINE
     Dosage: 1.19 MILLIGRAM DAILY; 1.19 MG ONE TIME ON DAYS 1, 29, AND 57
     Route: 042
     Dates: start: 20200211
  13. INCB018424 [Suspect]
     Active Substance: RUXOLITINIB
     Dosage: 70 MILLIGRAM DAILY;
     Route: 048
     Dates: start: 20190924, end: 20191008
  14. METHOTREXATE. [Suspect]
     Active Substance: METHOTREXATE
     Route: 037
     Dates: start: 20200220
  15. PREDNISONE. [Suspect]
     Active Substance: PREDNISONE
     Indication: ACUTE LYMPHOCYTIC LEUKAEMIA
     Dosage: 40 MG/M2 DAILY; 1?5, 29?33, 57?61
     Route: 048
     Dates: start: 20200108, end: 20200205
  16. INCB018424 [Suspect]
     Active Substance: RUXOLITINIB
     Dosage: 70 MILLIGRAM DAILY;
     Route: 048
     Dates: start: 20190716, end: 20190729
  17. INCB018424 [Suspect]
     Active Substance: RUXOLITINIB
     Dosage: 70 MILLIGRAM DAILY;
     Route: 048
     Dates: start: 20190821, end: 20190903
  18. METHOTREXATE. [Suspect]
     Active Substance: METHOTREXATE
     Indication: ACUTE LYMPHOCYTIC LEUKAEMIA
     Dosage: 15 MG ONE TIME ON DAYS 1 AND 29 OF CYCLES 1 AND 2
     Route: 037
     Dates: start: 20200108, end: 20200205
  19. INCB018424 [Suspect]
     Active Substance: RUXOLITINIB
     Indication: ACUTE LYMPHOCYTIC LEUKAEMIA
     Dosage: 70 MILLIGRAM DAILY;
     Route: 048
     Dates: start: 20190514, end: 20190530
  20. INCB018424 [Suspect]
     Active Substance: RUXOLITINIB
     Dosage: 70 MILLIGRAM DAILY;
     Route: 048
     Dates: start: 20191127, end: 20191206
  21. INCB018424 [Suspect]
     Active Substance: RUXOLITINIB
     Dosage: 70 MILLIGRAM DAILY;
     Route: 048
     Dates: start: 20191220, end: 20191229
  22. INCB018424 [Suspect]
     Active Substance: RUXOLITINIB
     Dosage: 70 MILLIGRAM DAILY;
     Route: 048
     Dates: start: 20191106, end: 20191117
  23. INCB018424 [Suspect]
     Active Substance: RUXOLITINIB
     Dosage: 70 MILLIGRAM DAILY;
     Route: 048
     Dates: start: 20200108, end: 20200121
  24. INCB018424 [Suspect]
     Active Substance: RUXOLITINIB
     Dosage: 70 MILLIGRAM DAILY;
     Route: 048
     Dates: end: 20200204
  25. INCB018424 [Suspect]
     Active Substance: RUXOLITINIB
     Dosage: 70 MILLIGRAM DAILY;
     Route: 048
     Dates: start: 20200310, end: 20200323

REACTIONS (7)
  - Pyrexia [Recovered/Resolved]
  - Alanine aminotransferase increased [Recovered/Resolved]
  - Dehydration [Recovered/Resolved]
  - Influenza [Recovered/Resolved]
  - Aspartate aminotransferase increased [Recovering/Resolving]
  - Somnolence [Recovered/Resolved]
  - Anaemia [Recovered/Resolved]

NARRATIVE: CASE EVENT DATE: 20200203
